FAERS Safety Report 25711302 (Version 1)
Quarter: 2025Q3

REPORT INFORMATION
  Report Type: Other
  Country: US (occurrence: US)
  Receive Date: 20250821
  Receipt Date: 20250821
  Transmission Date: 20251021
  Serious: Yes (Other)
  Sender: NUVO PHARMACEUTICALS
  Company Number: US-Nuvo Pharmaceuticals Inc-2182942

PATIENT
  Age: 48 Year
  Sex: Female

DRUGS (9)
  1. HYDROXYZINE HYDROCHLORIDE [Suspect]
     Active Substance: HYDROXYZINE HYDROCHLORIDE
     Indication: Product used for unknown indication
  2. KETAMINE [Interacting]
     Active Substance: KETAMINE
  3. INSULIN NOS [Concomitant]
     Active Substance: INSULIN NOS
  4. LISINOPRIL [Concomitant]
     Active Substance: LISINOPRIL
  5. TRAZODONE [Interacting]
     Active Substance: TRAZODONE HYDROCHLORIDE
  6. BREXPIPRAZOLE [Interacting]
     Active Substance: BREXPIPRAZOLE
  7. CARIPRAZINE [Interacting]
     Active Substance: CARIPRAZINE
  8. VENLAFAXINE [Interacting]
     Active Substance: VENLAFAXINE HYDROCHLORIDE
  9. AMLODIPINE [Interacting]
     Active Substance: AMLODIPINE BESYLATE

REACTIONS (2)
  - Serotonin syndrome [Recovered/Resolved]
  - Drug interaction [Unknown]
